FAERS Safety Report 23220673 (Version 1)
Quarter: 2023Q4

REPORT INFORMATION
  Report Type: Spontaneous
  Country: FR (occurrence: FR)
  Receive Date: 20231123
  Receipt Date: 20231123
  Transmission Date: 20240110
  Serious: Yes (Hospitalization, Other)
  Sender: FDA-Public Use
  Company Number: None

PATIENT

DRUGS (11)
  1. ALBUTEROL [Suspect]
     Active Substance: ALBUTEROL
     Indication: Tocolysis
     Dosage: UNK
     Route: 048
  2. NICARDIPINE HYDROCHLORIDE [Suspect]
     Active Substance: NICARDIPINE HYDROCHLORIDE
     Indication: Tocolysis
     Dosage: 3 MG, 24D
     Route: 042
  3. NICARDIPINE HYDROCHLORIDE [Suspect]
     Active Substance: NICARDIPINE HYDROCHLORIDE
     Dosage: 4 MG, 24D
     Route: 042
  4. NICARDIPINE HYDROCHLORIDE [Suspect]
     Active Substance: NICARDIPINE HYDROCHLORIDE
     Dosage: UNK
     Route: 042
  5. FUROSEMIDE [Suspect]
     Active Substance: FUROSEMIDE
     Indication: Acute pulmonary oedema
     Dosage: 250 MG, QD
     Route: 065
  6. FUROSEMIDE [Suspect]
     Active Substance: FUROSEMIDE
     Dosage: 80 MG
     Route: 065
  7. ATOSIBAN [Suspect]
     Active Substance: ATOSIBAN
     Indication: Tocolysis
     Dosage: UNK
     Route: 042
  8. ATOSIBAN [Suspect]
     Active Substance: ATOSIBAN
     Dosage: UNK
     Route: 042
  9. ADALAT [Suspect]
     Active Substance: NIFEDIPINE
     Indication: Tocolysis
     Dosage: UNK
     Route: 048
  10. BETAMETHASONE SODIUM PHOSPHATE [Suspect]
     Active Substance: BETAMETHASONE SODIUM PHOSPHATE
     Indication: Maternal therapy to enhance foetal lung maturity
     Dosage: 12 MG
     Route: 030
  11. BETAMETHASONE SODIUM PHOSPHATE [Suspect]
     Active Substance: BETAMETHASONE SODIUM PHOSPHATE
     Dosage: 12 MG
     Route: 030

REACTIONS (18)
  - Hypoventilation [Unknown]
  - Overdose [Unknown]
  - Left ventricular dysfunction [Unknown]
  - Headache [Unknown]
  - Back pain [Unknown]
  - Respiratory alkalosis [Unknown]
  - Mitral valve incompetence [Unknown]
  - Tachypnoea [Unknown]
  - Visual impairment [Unknown]
  - Acute pulmonary oedema [Unknown]
  - Photophobia [Unknown]
  - Premature labour [Unknown]
  - Respiratory distress [Unknown]
  - Hypoxia [Unknown]
  - Left ventricular end-diastolic pressure increased [Unknown]
  - Pulmonary hypertension [Unknown]
  - Pleural effusion [Unknown]
  - Exposure during pregnancy [Unknown]
